FAERS Safety Report 5720019-8 (Version None)
Quarter: 2008Q2

REPORT INFORMATION
  Report Type: 
  Country: None (occurrence: None)
  Receive Date: 20080424
  Receipt Date: 20080411
  Transmission Date: 20081010
  Serious: No
  Sender: FDA-Public Use
  Company Number: US023256

PATIENT
  Sex: Female

DRUGS (3)
  1. FENTORA [Suspect]
     Indication: HAEMANGIOMA
     Dosage: 600 UG Q 1-2 HOURS BUCCAL
     Route: 002
  2. FENTORA [Suspect]
     Indication: INTRACRANIAL PRESSURE INCREASED
     Dosage: 600 UG Q 1-2 HOURS BUCCAL
     Route: 002
  3. FENTORA [Suspect]
     Indication: PAIN
     Dosage: 600 UG Q 1-2 HOURS BUCCAL
     Route: 002

REACTIONS (1)
  - DRUG PRESCRIBING ERROR [None]
